FAERS Safety Report 20022895 (Version 6)
Quarter: 2022Q1

REPORT INFORMATION
  Report Type: Report from Study
  Country: CA (occurrence: CA)
  Receive Date: 20211102
  Receipt Date: 20220216
  Transmission Date: 20220423
  Serious: Yes (Hospitalization)
  Sender: FDA-Public Use
  Company Number: CA-BIOGEN-2020BI00911770

PATIENT
  Age: 23 Year
  Sex: Female

DRUGS (2)
  1. TYSABRI [Suspect]
     Active Substance: NATALIZUMAB
     Indication: Multiple sclerosis
     Dosage: INFUSED OVER 1 HOUR
     Route: 042
     Dates: start: 20160829
  2. TYSABRI [Suspect]
     Active Substance: NATALIZUMAB
     Dosage: INFUSED OVER 1 HOUR
     Route: 042
     Dates: start: 20160829

REACTIONS (11)
  - Pancreatitis [Unknown]
  - Hypertension [Recovered/Resolved]
  - Blood pressure fluctuation [Unknown]
  - Prescribed underdose [Unknown]
  - Injection site mass [Unknown]
  - Injection site erythema [Unknown]
  - Injection site discolouration [Unknown]
  - Infusion site bruising [Unknown]
  - Limb mass [Unknown]
  - Contusion [Unknown]
  - Dermatitis infected [Recovered/Resolved]

NARRATIVE: CASE EVENT DATE: 20211018
